FAERS Safety Report 10462504 (Version 1)
Quarter: 2014Q3

REPORT INFORMATION
  Report Type: Spontaneous
  Country: JP (occurrence: JP)
  Receive Date: 20140918
  Receipt Date: 20140918
  Transmission Date: 20150326
  Serious: Yes (Hospitalization, Other)
  Sender: FDA-Public Use
  Company Number: PHHY2014JP120146

PATIENT
  Age: 86 Year
  Sex: Male
  Weight: 50 kg

DRUGS (1)
  1. TELMISARTAN+HYDROCHLOROTHIAZIDE [Suspect]
     Active Substance: HYDROCHLOROTHIAZIDE\TELMISARTAN
     Indication: HYPERTENSION

REACTIONS (5)
  - Hyponatraemia [Recovered/Resolved]
  - Nausea [Unknown]
  - Listless [Unknown]
  - Lethargy [Unknown]
  - Skin turgor decreased [Unknown]
